FAERS Safety Report 18534602 (Version 1)
Quarter: 2020Q4

REPORT INFORMATION
  Report Type: Spontaneous
  Country: ES (occurrence: ES)
  Receive Date: 20201123
  Receipt Date: 20201123
  Transmission Date: 20210114
  Serious: Yes (Other)
  Sender: FDA-Public Use
  Company Number: ES-TEVA-2020-ES-1850293

PATIENT
  Age: 43 Year
  Sex: Female
  Weight: 60 kg

DRUGS (3)
  1. AMOXICILINA (108A) [Suspect]
     Active Substance: AMOXICILLIN
     Indication: TOOTH FRACTURE
     Dosage: 2250 MILLIGRAM DAILY;
     Route: 048
     Dates: start: 20201028
  2. EUTIROX 25 MICROGRAMOS COMPRIMIDOS , 100 COMPRIMIDOS [Concomitant]
     Indication: AUTOIMMUNE HYPOTHYROIDISM
     Dates: start: 20180702
  3. ESCITALOPRAM [Concomitant]
     Active Substance: ESCITALOPRAM OXALATE
     Indication: ANXIETY
     Dosage: KERN PHARMA 25M A DAY
     Dates: start: 20161001

REACTIONS (7)
  - Anal pruritus [Recovered/Resolved]
  - Pruritus genital [Recovering/Resolving]
  - Fatigue [Recovering/Resolving]
  - Pruritus [Not Recovered/Not Resolved]
  - Headache [Recovering/Resolving]
  - Dyspnoea [Recovering/Resolving]
  - Pharyngeal swelling [Recovering/Resolving]

NARRATIVE: CASE EVENT DATE: 20201028
